FAERS Safety Report 21990045 (Version 2)
Quarter: 2023Q1

REPORT INFORMATION
  Report Type: Spontaneous
  Country: NG (occurrence: NG)
  Receive Date: 20230214
  Receipt Date: 20230217
  Transmission Date: 20230418
  Serious: Yes (Hospitalization, Other)
  Sender: FDA-Public Use
  Company Number: NG-PFIZER INC-PV202300027268

PATIENT
  Sex: Male
  Weight: 2.67 kg

DRUGS (1)
  1. MEROPENEM [Suspect]
     Active Substance: MEROPENEM
     Indication: Klebsiella infection
     Dosage: UNK

REACTIONS (3)
  - Jaundice neonatal [Unknown]
  - Transaminases abnormal [Unknown]
  - Off label use [Unknown]
